FAERS Safety Report 7167370-5 (Version None)
Quarter: 2010Q4

REPORT INFORMATION
  Report Type: 
  Country: None (occurrence: None)
  Receive Date: 20101216
  Receipt Date: 20101209
  Transmission Date: 20110411
  Serious: No
  Sender: FDA-Public Use
  Company Number: KR-JNJFOC-20101203737

PATIENT
  Age: 58 Year
  Sex: Male

DRUGS (6)
  1. DURAGESIC-100 [Suspect]
     Indication: PAIN IN EXTREMITY
     Route: 062
  2. DURAGESIC-100 [Suspect]
     Route: 062
  3. DURAGESIC-100 [Suspect]
     Indication: BURNING SENSATION
     Route: 062
  4. DURAGESIC-100 [Suspect]
     Route: 062
  5. LAXATIVES [Concomitant]
     Indication: CONSTIPATION
     Route: 048
  6. HONEY [Concomitant]
     Indication: CONSTIPATION
     Route: 048

REACTIONS (2)
  - CONSTIPATION [None]
  - WRONG TECHNIQUE IN DRUG USAGE PROCESS [None]
